FAERS Safety Report 11611106 (Version 1)
Quarter: 2015Q4

REPORT INFORMATION
  Report Type: Spontaneous
  Country: US (occurrence: None)
  Receive Date: 20151007
  Receipt Date: 20151007
  Transmission Date: 20160304
  Serious: Yes (Hospitalization)
  Sender: FDA-Public Use
  Company Number: None

PATIENT
  Age: 68 Year
  Sex: Female
  Weight: 63.2 kg

DRUGS (10)
  1. MEPRON [Concomitant]
     Active Substance: ATOVAQUONE
  2. PRILOSEC [Concomitant]
     Active Substance: OMEPRAZOLE MAGNESIUM
  3. ZOFRAN [Concomitant]
     Active Substance: ONDANSETRON HYDROCHLORIDE
  4. BENDAMUSTINE HYDROCHLORIDE [Suspect]
     Active Substance: BENDAMUSTINE HYDROCHLORIDE
     Dates: end: 20150917
  5. RITUXIMAB (MOAB C2B8 ANTI CD20, CHIMERIC) [Suspect]
     Active Substance: RITUXIMAB
     Dates: end: 20150915
  6. NEULASTA [Concomitant]
     Active Substance: PEGFILGRASTIM
  7. BACTRIM [Concomitant]
     Active Substance: SULFAMETHOXAZOLE\TRIMETHOPRIM
  8. SENOKOT [Concomitant]
     Active Substance: SENNOSIDES
  9. COMPAZINE [Concomitant]
     Active Substance: PROCHLORPERAZINE MALEATE
  10. ZYLOPRIM [Concomitant]
     Active Substance: ALLOPURINOL

REACTIONS (6)
  - Chills [None]
  - Pyrexia [None]
  - Malaise [None]
  - Nausea [None]
  - Lung infiltration [None]
  - Atelectasis [None]

NARRATIVE: CASE EVENT DATE: 20150925
